FAERS Safety Report 6524019-X (Version None)
Quarter: 2009Q4

REPORT INFORMATION
  Report Type: 
  Country: None (occurrence: None)
  Receive Date: 20091230
  Receipt Date: 20091230
  Transmission Date: 20100525
  Serious: Yes (Other)
  Sender: FDA-Public Use
  Company Number: None

PATIENT
  Age: 80 Year
  Sex: Female
  Weight: 46.4 kg

DRUGS (1)
  1. RECLAST [Suspect]
     Indication: OSTEOPOROSIS
     Dosage: PRESCRIBED ONCE IV
     Route: 042
     Dates: start: 20090918

REACTIONS (5)
  - DRY MOUTH [None]
  - HYPERTENSION [None]
  - ORAL PAIN [None]
  - PROTRUSION TONGUE [None]
  - TONGUE BITING [None]
